FAERS Safety Report 5330850-9 (Version None)
Quarter: 2007Q1

REPORT INFORMATION
  Report Type: 
  Country: None (occurrence: None)
  Receive Date: 20070227
  Receipt Date: 20060824
  Transmission Date: 20070707
  Serious: Yes (Other)
  Sender: FDA-Public Use
  Company Number: 460971

PATIENT
  Age: 15 Year
  Sex: Male
  Weight: 65.8 kg

DRUGS (1)
  1. ACCUTANE [Suspect]
     Indication: ACNE
     Dosage: 40 MG 2 PER 1 DAY ORAL
     Route: 048
     Dates: start: 20060626, end: 20060822

REACTIONS (1)
  - CONVULSION [None]
